FAERS Safety Report 22973589 (Version 2)
Quarter: 2025Q4

REPORT INFORMATION
  Report Type: Spontaneous
  Country: US (occurrence: US)
  Receive Date: 20230922
  Receipt Date: 20251120
  Transmission Date: 20260119
  Serious: Yes (Other)
  Sender: PFIZER
  Company Number: US-PFIZER INC-202300305589

PATIENT
  Age: 79 Year
  Sex: Male
  Weight: 76.66 kg

DRUGS (1)
  1. VYNDAMAX [Suspect]
     Active Substance: TAFAMIDIS
     Indication: Cardiac amyloidosis
     Dosage: ONE CAPSULE EVERY MORNING

REACTIONS (2)
  - Cardiac valve disease [Unknown]
  - Product dose omission issue [Unknown]
